FAERS Safety Report 7047843-6 (Version None)
Quarter: 2010Q4

REPORT INFORMATION
  Report Type: 
  Country: None (occurrence: None)
  Receive Date: 20101015
  Receipt Date: 20101008
  Transmission Date: 20110411
  Serious: Yes (Hospitalization)
  Sender: FDA-Public Use
  Company Number: DE-CEPHALON-2010005380

PATIENT
  Sex: Female

DRUGS (2)
  1. ACTIQ [Suspect]
     Indication: BACK PAIN
     Route: 002
  2. MORPHINE PUMP [Concomitant]

REACTIONS (2)
  - DEPENDENCE [None]
  - INTENTIONAL DRUG MISUSE [None]
